FAERS Safety Report 8537698-2 (Version None)
Quarter: 2012Q3

REPORT INFORMATION
  Report Type: 
  Country: None (occurrence: None)
  Receive Date: 20120725
  Receipt Date: 20120717
  Transmission Date: 20120928
  Serious: No
  Sender: FDA-Public Use
  Company Number: US-B.I. PHARMACEUTICALS,INC./RIDGEFIELD-2012-BP-15933BP

PATIENT
  Sex: Female

DRUGS (1)
  1. AGGRENOX [Suspect]
     Route: 048

REACTIONS (1)
  - HAND FRACTURE [None]
